FAERS Safety Report 6903561-3 (Version None)
Quarter: 2010Q3

REPORT INFORMATION
  Report Type: 
  Country: None (occurrence: None)
  Receive Date: 20100730
  Receipt Date: 20100722
  Transmission Date: 20110219
  Serious: Yes (Hospitalization)
  Sender: FDA-Public Use
  Company Number: ABCOB-10-0384

PATIENT
  Age: 61 Year
  Sex: Female
  Weight: 50.8029 kg

DRUGS (7)
  1. ABRAXANE [Suspect]
     Indication: PANCREATIC CARCINOMA
     Dosage: 184 MG DAYS 1, 8 AND 15 (184 MG), INTRAVENOUS
     Route: 042
     Dates: start: 20100311, end: 20100422
  2. ERLOTINIB HYDROCHLORIDE [Suspect]
     Indication: PANCREATIC CARCINOMA
     Dosage: (100 MG), ORAL
     Route: 048
     Dates: start: 20100311
  3. GEMCITABINE [Suspect]
     Indication: PANCREATIC CARCINOMA
     Dosage: 1102 MG DAYS 1, 8, AND 15 (1102 MG), INTRAVENOUS
     Route: 042
     Dates: start: 20100311
  4. IMODIUM [Concomitant]
  5. NADOLOL [Concomitant]
  6. DOXYCYCLINE [Concomitant]
  7. WESTCORT (HYDROCORTISONE VALERATE) [Concomitant]

REACTIONS (9)
  - DEHYDRATION [None]
  - DIARRHOEA [None]
  - DRUG TOXICITY [None]
  - HYPOTENSION [None]
  - NEUTROPHIL COUNT DECREASED [None]
  - PERIPHERAL SENSORY NEUROPATHY [None]
  - SEPSIS [None]
  - STOMATITIS [None]
  - URINARY TRACT INFECTION [None]
